FAERS Safety Report 6385942-2 (Version None)
Quarter: 2009Q4

REPORT INFORMATION
  Report Type: 
  Country: None (occurrence: None)
  Receive Date: 20091002
  Receipt Date: 20090226
  Transmission Date: 20100525
  Serious: No
  Sender: FDA-Public Use
  Company Number: US-ASTRAZENECA-2009UW05442

PATIENT
  Age: 75 Year
  Sex: Female

DRUGS (6)
  1. ARIMIDEX [Suspect]
     Route: 048
     Dates: start: 20081001
  2. INSULIN [Concomitant]
  3. METFORMIN [Concomitant]
  4. DIGOXIN [Concomitant]
  5. LANTUS [Concomitant]
  6. IBUPROFEN [Concomitant]

REACTIONS (4)
  - ACNE [None]
  - BONE PAIN [None]
  - COUGH [None]
  - DIARRHOEA [None]
